FAERS Safety Report 9571028 (Version 1)
Quarter: 2013Q3

REPORT INFORMATION
  Report Type: Spontaneous
  Country: US (occurrence: None)
  Receive Date: 20130927
  Receipt Date: 20130927
  Transmission Date: 20140515
  Serious: Yes (Other)
  Sender: FDA-Public Use
  Company Number: USA/USA/13/0034677

PATIENT
  Age: 56 Year
  Sex: Female

DRUGS (5)
  1. ANASTROZOLE [Suspect]
     Indication: BREAST CANCER
  2. CARBOPLATIN [Suspect]
     Indication: ENDOMETRIAL CANCER STAGE I
     Dosage: UNKNOWN, CYCLICAL, UNKNOWN
  3. CARBOPLATIN [Suspect]
     Indication: OVARIAN CANCER STAGE I
     Dosage: UNKNOWN, CYCLICAL, UNKNOWN
  4. PACLITAXEL [Suspect]
     Indication: ENDOMETRIAL CANCER STAGE I
  5. PACLITAXEL [Suspect]
     Indication: OVARIAN CANCER STAGE I

REACTIONS (3)
  - Papilloedema [None]
  - Visual acuity reduced [None]
  - Visual field defect [None]
